FAERS Safety Report 12617743 (Version 1)
Quarter: 2016Q3

REPORT INFORMATION
  Report Type: Spontaneous
  Country: US (occurrence: US)
  Receive Date: 20160803
  Receipt Date: 20160803
  Transmission Date: 20161109
  Serious: No
  Sender: FDA-Public Use
  Company Number: US-PFIZER INC-2016351011

PATIENT
  Age: 68 Year
  Sex: Female

DRUGS (1)
  1. GABAPENTIN. [Suspect]
     Active Substance: GABAPENTIN
     Indication: NIGHTMARE
     Dosage: 300 MG, 2X/DAY
     Route: 048
     Dates: start: 20140612, end: 20140710

REACTIONS (1)
  - Drug ineffective for unapproved indication [Unknown]
